FAERS Safety Report 16657517 (Version 2)
Quarter: 2019Q3

REPORT INFORMATION
  Report Type: Report from Study
  Country: US (occurrence: US)
  Receive Date: 20190801
  Receipt Date: 20190809
  Transmission Date: 20191004
  Serious: No
  Sender: FDA-Public Use
  Company Number: US-SA-2019SA205907

PATIENT
  Age: 68 Year
  Sex: Male

DRUGS (2)
  1. ALIROCUMAB [Suspect]
     Active Substance: ALIROCUMAB
     Indication: BLOOD CHOLESTEROL INCREASED
     Dosage: 150 MG, QOW
     Dates: start: 20190723
  2. ALIROCUMAB [Suspect]
     Active Substance: ALIROCUMAB
     Indication: ARTERIOSCLEROSIS

REACTIONS (5)
  - Sleep disorder [Unknown]
  - Condition aggravated [Unknown]
  - Injection site pain [Unknown]
  - Muscle spasms [Unknown]
  - Pain [Unknown]

NARRATIVE: CASE EVENT DATE: 201907
